FAERS Safety Report 5381798-5 (Version None)
Quarter: 2007Q3

REPORT INFORMATION
  Report Type: 
  Country: None (occurrence: None)
  Receive Date: 20070705
  Receipt Date: 20070705
  Transmission Date: 20080115
  Serious: No
  Sender: FDA-Public Use
  Company Number: None

PATIENT
  Sex: Female
  Weight: 65.9 kg

DRUGS (1)
  1. DIPHENHYDRAMINE HCL [Suspect]
     Indication: PREMEDICATION
     Dosage: 25MG PREMED Q4WEEKS IV
     Route: 042
     Dates: start: 20061106, end: 20070616

REACTIONS (6)
  - ADDISON'S DISEASE [None]
  - ANXIETY [None]
  - CONDITION AGGRAVATED [None]
  - FEELING ABNORMAL [None]
  - NERVOUSNESS [None]
  - RESTLESSNESS [None]
